FAERS Safety Report 24326653 (Version 3)
Quarter: 2025Q2

REPORT INFORMATION
  Report Type: Spontaneous
  Country: AU (occurrence: AU)
  Receive Date: 20240917
  Receipt Date: 20250616
  Transmission Date: 20250717
  Serious: No
  Sender: ABBVIE
  Company Number: AU-ABBVIE-5924760

PATIENT

DRUGS (1)
  1. COMBIGAN [Suspect]
     Active Substance: BRIMONIDINE TARTRATE\TIMOLOL MALEATE
     Indication: Product used for unknown indication
     Route: 047

REACTIONS (1)
  - No adverse event [Unknown]
